FAERS Safety Report 7829507-1 (Version None)
Quarter: 2011Q4

REPORT INFORMATION
  Report Type: 
  Country: None (occurrence: None)
  Receive Date: 20111020
  Receipt Date: 20111014
  Transmission Date: 20120403
  Serious: Yes (Other)
  Sender: FDA-Public Use
  Company Number: US-ROCHE-755674

PATIENT
  Sex: Female
  Weight: 95.3 kg

DRUGS (1)
  1. ACCUTANE [Suspect]
     Indication: ACNE
     Route: 065
     Dates: start: 20000101, end: 20010101

REACTIONS (8)
  - IRRITABLE BOWEL SYNDROME [None]
  - COLITIS ULCERATIVE [None]
  - DIVERTICULUM [None]
  - HAEMORRHOIDS [None]
  - JOINT INJURY [None]
  - ANAL STENOSIS [None]
  - COLONIC POLYP [None]
  - OSTEOARTHRITIS [None]
